FAERS Safety Report 11599279 (Version 1)
Quarter: 2015Q4

REPORT INFORMATION
  Report Type: Report from Study
  Country: US (occurrence: US)
  Receive Date: 20151006
  Receipt Date: 20151006
  Transmission Date: 20160304
  Serious: Yes (Hospitalization)
  Sender: FDA-Public Use
  Company Number: US-ACTELION-A-NJ2015-124642

PATIENT
  Age: 77 Year
  Sex: Female

DRUGS (1)
  1. MECHLORETHAMINE [Suspect]
     Active Substance: MECHLORETHAMINE
     Indication: MYCOSIS FUNGOIDES
     Dosage: UNK
     Route: 061
     Dates: start: 20150626

REACTIONS (6)
  - Haemoglobin decreased [Unknown]
  - Transfusion [Unknown]
  - Sepsis [Recovered/Resolved]
  - Atrial fibrillation [Unknown]
  - Crohn^s disease [Unknown]
  - Gastrointestinal haemorrhage [Recovered/Resolved]

NARRATIVE: CASE EVENT DATE: 201508
